FAERS Safety Report 5551447-1 (Version None)
Quarter: 2007Q4

REPORT INFORMATION
  Report Type: 
  Country: None (occurrence: None)
  Receive Date: 20071212
  Receipt Date: 20071130
  Transmission Date: 20080405
  Serious: Yes (Other)
  Sender: FDA-Public Use
  Company Number: GB-PFIZER INC-2007103023

PATIENT
  Sex: Female

DRUGS (2)
  1. CHAMPIX [Suspect]
  2. ANTIDEPRESSANTS [Concomitant]

REACTIONS (2)
  - DEPRESSION [None]
  - SUICIDE ATTEMPT [None]
